FAERS Safety Report 25856732 (Version 1)
Quarter: 2025Q3

REPORT INFORMATION
  Report Type: Spontaneous
  Country: EU (occurrence: EU)
  Receive Date: 20250929
  Receipt Date: 20250929
  Transmission Date: 20251020
  Serious: Yes (Other)
  Sender: BIOVITRUM
  Company Number: EU-BIOVITRUM-2025-HU-013224

PATIENT
  Age: 51 Year
  Sex: Female

DRUGS (3)
  1. DOPTELET [Suspect]
     Active Substance: AVATROMBOPAG MALEATE
     Indication: Thrombocytopenia
     Dates: start: 202302
  2. DOPTELET [Suspect]
     Active Substance: AVATROMBOPAG MALEATE
  3. DOPTELET [Suspect]
     Active Substance: AVATROMBOPAG MALEATE

REACTIONS (2)
  - Thrombocytosis [Unknown]
  - Aortic thrombosis [Unknown]

NARRATIVE: CASE EVENT DATE: 20230701
